FAERS Safety Report 9201950 (Version 3)
Quarter: 2013Q2

REPORT INFORMATION
  Report Type: Spontaneous
  Country: JP (occurrence: None)
  Receive Date: 20130327
  Receipt Date: 20130425
  Transmission Date: 20140414
  Serious: Yes (Hospitalization)
  Sender: FDA-Public Use
  Company Number: TCI2013A01667

PATIENT
  Age: 59 Year
  Sex: Male

DRUGS (3)
  1. ALOGLIPTIN BENZOATE [Suspect]
     Indication: TYPE 2 DIABETES MELLITUS
     Route: 048
     Dates: start: 20130124, end: 20130319
  2. NORVASC OD (AMLODIPINE BESILATE) [Concomitant]
  3. MICARDIS (TELMISARTAN) [Concomitant]

REACTIONS (3)
  - Melaena [None]
  - Haemoglobin decreased [None]
  - Diverticulum intestinal [None]
